FAERS Safety Report 17692778 (Version 1)
Quarter: 2020Q2

REPORT INFORMATION
  Report Type: Spontaneous
  Country: US (occurrence: US)
  Receive Date: 20200421
  Receipt Date: 20200421
  Transmission Date: 20200714
  Serious: No
  Sender: FDA-Public Use
  Company Number: None

PATIENT
  Age: 63 Year
  Sex: Male

DRUGS (1)
  1. METHOTREXATE 2.5MG TAB [Suspect]
     Active Substance: METHOTREXATE
     Dosage: ?          OTHER FREQUENCY:UNKNOWN;?
     Route: 058
     Dates: start: 201911, end: 202001

REACTIONS (2)
  - Therapy cessation [None]
  - Abdominal discomfort [None]

NARRATIVE: CASE EVENT DATE: 20200130
